FAERS Safety Report 7908336-4 (Version None)
Quarter: 2011Q4

REPORT INFORMATION
  Report Type: 
  Country: None (occurrence: None)
  Receive Date: 20111109
  Receipt Date: 20111109
  Transmission Date: 20120403
  Serious: Yes (Hospitalization)
  Sender: FDA-Public Use
  Company Number: None

PATIENT
  Age: 64 Year
  Sex: Female
  Weight: 88 kg

DRUGS (4)
  1. UNSPECIFIED SHAVER [Suspect]
     Dosage: TOPICAL
     Route: 061
  2. VANICREAM LOTION [Suspect]
     Indication: PRURITUS
  3. AVEENO THERAPEUTIC SHAVE GEL 7 OZ CAN [Suspect]
     Dosage: TOPICAL
     Route: 061
     Dates: start: 20110907, end: 20110907
  4. METFORMIN HCL [Concomitant]

REACTIONS (7)
  - SWELLING [None]
  - APPLICATION SITE PRURITUS [None]
  - DRUG INEFFECTIVE [None]
  - SECRETION DISCHARGE [None]
  - ERYTHEMA [None]
  - SKIN HAEMORRHAGE [None]
  - SCRATCH [None]
